FAERS Safety Report 19007534 (Version 1)
Quarter: 2021Q1

REPORT INFORMATION
  Report Type: Report from Study
  Country: None (occurrence: US)
  Receive Date: 20210315
  Receipt Date: 20210315
  Transmission Date: 20210420
  Serious: Yes (Other)
  Sender: FDA-Public Use
  Company Number: US-ABBVIE-21K-163-3758911-00

PATIENT
  Sex: Female

DRUGS (1)
  1. RINVOQ [Suspect]
     Active Substance: UPADACITINIB
     Indication: RHEUMATOID ARTHRITIS
     Route: 048
     Dates: start: 20210107

REACTIONS (10)
  - Dyspnoea [Unknown]
  - Infection [Unknown]
  - Micturition urgency [Unknown]
  - Constipation [Unknown]
  - Blindness [Not Recovered/Not Resolved]
  - Deafness [Not Recovered/Not Resolved]
  - Dysuria [Unknown]
  - Fatigue [Unknown]
  - Drug ineffective [Unknown]
  - Urethritis noninfective [Not Recovered/Not Resolved]

NARRATIVE: CASE EVENT DATE: 2021
